FAERS Safety Report 5338750-5 (Version None)
Quarter: 2007Q2

REPORT INFORMATION
  Report Type: 
  Country: None (occurrence: None)
  Receive Date: 20070328
  Receipt Date: 20061130
  Transmission Date: 20071010
  Serious: Yes (Hospitalization)
  Sender: FDA-Public Use
  Company Number: 13598487

PATIENT
  Age: 50 Year
  Sex: Female

DRUGS (1)
  1. EMSAM [Suspect]
     Dosage: 12 MILLIGRAM, 1 DAY

REACTIONS (1)
  - MANIA [None]
